FAERS Safety Report 7455303-3 (Version None)
Quarter: 2011Q2

REPORT INFORMATION
  Report Type: 
  Country: None (occurrence: None)
  Receive Date: 20110503
  Receipt Date: 20110425
  Transmission Date: 20111010
  Serious: Yes (Hospitalization, Other)
  Sender: FDA-Public Use
  Company Number: US-PURDUE-USA-2010-0056110

PATIENT
  Sex: Male
  Weight: 87.982 kg

DRUGS (3)
  1. OXYCONTIN (NDA 22-272) [Suspect]
     Indication: PRODUCT USED FOR UNKNOWN INDICATION
     Dosage: 80 MG, Q12H PRN
     Dates: start: 20100901
  2. OXYCONTIN (NDA 22-272) [Suspect]
     Dosage: 60 MG, Q24H
     Dates: start: 20101206, end: 20110413
  3. DILAUDID [Concomitant]
     Indication: PRODUCT USED FOR UNKNOWN INDICATION

REACTIONS (13)
  - CLOSTRIDIAL INFECTION [None]
  - CLAVICLE FRACTURE [None]
  - GASTRIC DISORDER [None]
  - ROTATOR CUFF SYNDROME [None]
  - BALANCE DISORDER [None]
  - BRONCHITIS [None]
  - NOSOCOMIAL INFECTION [None]
  - STERNAL FRACTURE [None]
  - FALL [None]
  - SYSTEMIC LUPUS ERYTHEMATOSUS [None]
  - PNEUMONIA [None]
  - MALAISE [None]
  - ABDOMINAL DISCOMFORT [None]
